FAERS Safety Report 19656137 (Version 1)
Quarter: 2021Q3

REPORT INFORMATION
  Report Type: Spontaneous
  Country: JP (occurrence: JP)
  Receive Date: 20210804
  Receipt Date: 20210804
  Transmission Date: 20211014
  Serious: Yes (Other)
  Sender: FDA-Public Use
  Company Number: JP-STRIDES ARCOLAB LIMITED-2021SP025780

PATIENT
  Age: 79 Year
  Sex: Male

DRUGS (11)
  1. PREDNISOLONE. [Suspect]
     Active Substance: PREDNISOLONE
     Indication: IMMUNE THROMBOCYTOPENIA
     Dosage: 0.5 MILLIGRAM PER DAY, 2 WEEK, CONTINUOUSLY FOR SECOND?LINE TREATMENT
     Route: 065
  2. DOXORUBICIN [Suspect]
     Active Substance: DOXORUBICIN
     Indication: IMMUNE THROMBOCYTOPENIA
     Dosage: 33 MILLIGRAM/SQ.METER, VR?CAP CHEMOTHERAPY (FIRST?LINE TREATMENT); ON DAY 1 (4 COURSES)
     Route: 065
  3. CYCLOPHOSPHAMIDE. [Suspect]
     Active Substance: CYCLOPHOSPHAMIDE
     Indication: MANTLE CELL LYMPHOMA
  4. DOXORUBICIN [Suspect]
     Active Substance: DOXORUBICIN
     Indication: MANTLE CELL LYMPHOMA
  5. RITUXIMAB. [Suspect]
     Active Substance: RITUXIMAB
     Indication: MANTLE CELL LYMPHOMA
     Dosage: 375 MILLIGRAM/SQ.METER, VR?CAP CHEMOTHERAPY (FIRST?LINE TREATMENT); ON DAY 0 (4 COURSES)
     Route: 065
  6. RITUXIMAB. [Suspect]
     Active Substance: RITUXIMAB
     Dosage: 375 MILLIGRAM/SQ.METER, R?B CHEMOTHERAPY (SECOND?LINE TREATMENT); ON DAY 0
     Route: 065
  7. BORTEZOMIB. [Suspect]
     Active Substance: BORTEZOMIB
     Indication: IMMUNE THROMBOCYTOPENIA
     Dosage: 1.3 MILLIGRAM/SQ.METER, VR?CAP CHEMOTHERAPY (FIRST?LINE TREATMENT); ON DAY 1, 4, 8 AND 11, (4 COURSE
     Route: 065
  8. CYCLOPHOSPHAMIDE. [Suspect]
     Active Substance: CYCLOPHOSPHAMIDE
     Indication: IMMUNE THROMBOCYTOPENIA
     Dosage: 500 MILLIGRAM/SQ.METER, VR?CAP CHEMOTHERAPY (FIRST?LINE TREATMENT); ON DAY 1, (4 COURSES)
     Route: 065
  9. RITUXIMAB. [Suspect]
     Active Substance: RITUXIMAB
     Indication: IMMUNE THROMBOCYTOPENIA
     Dosage: 375 MILLIGRAM/SQ.METER, MONOTHERAPY (THIRD?LINE TREATMENT)
     Route: 065
  10. BORTEZOMIB. [Suspect]
     Active Substance: BORTEZOMIB
     Indication: MANTLE CELL LYMPHOMA
  11. PREDNISOLONE. [Suspect]
     Active Substance: PREDNISOLONE
     Indication: MANTLE CELL LYMPHOMA
     Dosage: 60 MILLIGRAM/SQ. METER ON DAY 1?5
     Route: 065

REACTIONS (4)
  - Drug ineffective [Unknown]
  - Cytopenia [Unknown]
  - Myelosuppression [Unknown]
  - Off label use [Unknown]
